FAERS Safety Report 7778357 (Version 3)
Quarter: 2014Q3

REPORT INFORMATION
  Report Type: Spontaneous
  Country: FR (occurrence: FR)
  Receive Date: 20110128
  Receipt Date: 20140804
  Transmission Date: 20150326
  Serious: No
  Sender: FDA-Public Use
  Company Number: FR-ROCHE-752617

PATIENT
  Sex: Female

DRUGS (3)
  1. TAMIFLU [Suspect]
     Active Substance: OSELTAMIVIR PHOSPHATE
     Dosage: TOOK THREE CAPSULES DAILY FOR THREE DAYS (225 MG) INSTEAD OF TWO CAPS DAILY(75MG TWICE DAILY)
     Route: 065
  2. AUGMENTIN [Concomitant]
     Active Substance: AMOXICILLIN\CLAVULANATE POTASSIUM
  3. TAMIFLU [Suspect]
     Active Substance: OSELTAMIVIR PHOSPHATE
     Indication: DRUG THERAPY
     Route: 065

REACTIONS (3)
  - No adverse event [Unknown]
  - Pregnancy [Unknown]
  - Overdose [Unknown]
